FAERS Safety Report 7382123-0 (Version None)
Quarter: 2011Q1

REPORT INFORMATION
  Report Type: 
  Country: None (occurrence: None)
  Receive Date: 20110329
  Receipt Date: 20110324
  Transmission Date: 20110831
  Serious: Yes (Hospitalization)
  Sender: FDA-Public Use
  Company Number: PHHO2010JP15640

PATIENT
  Sex: Male
  Weight: 68 kg

DRUGS (2)
  1. GENTACIN [Concomitant]
  2. AMN107 [Suspect]
     Indication: CHRONIC MYELOID LEUKAEMIA
     Dosage: UNK
     Route: 048
     Dates: start: 20080508, end: 20101006

REACTIONS (15)
  - CORONARY ARTERY STENOSIS [None]
  - DYSPNOEA [None]
  - PYREXIA [None]
  - CATHETERISATION CARDIAC [None]
  - NEUROPATHY PERIPHERAL [None]
  - HYPOAESTHESIA [None]
  - ABDOMINAL DISTENSION [None]
  - MYOCARDIAL ISCHAEMIA [None]
  - ENDOTRACHEAL INTUBATION [None]
  - WOUND COMPLICATION [None]
  - CORONARY ARTERY BYPASS [None]
  - CHEST PAIN [None]
  - ELECTROCARDIOGRAM ABNORMAL [None]
  - ANGINA PECTORIS [None]
  - CHEST DISCOMFORT [None]
